FAERS Safety Report 25642369 (Version 1)
Quarter: 2025Q3

REPORT INFORMATION
  Report Type: Spontaneous
  Country: GB (occurrence: GB)
  Receive Date: 20250805
  Receipt Date: 20250805
  Transmission Date: 20251020
  Serious: Yes (Other)
  Sender: ACCORD
  Company Number: None

PATIENT
  Sex: Female

DRUGS (1)
  1. FLUOXETINE [Suspect]
     Active Substance: FLUOXETINE HYDROCHLORIDE
     Indication: Product used for unknown indication

REACTIONS (13)
  - Medication error [Unknown]
  - Dizziness [Recovered/Resolved]
  - Headache [Recovered/Resolved]
  - Tremor [Recovered/Resolved]
  - Emotional disorder [Recovered/Resolved]
  - Hypoaesthesia [Recovered/Resolved]
  - Weight increased [Recovering/Resolving]
  - Paraesthesia [Recovered/Resolved]
  - Nightmare [Recovered/Resolved]
  - Irritability [Recovered/Resolved]
  - Anger [Recovered/Resolved]
  - Negative thoughts [Recovered/Resolved]
  - Libido decreased [Recovered/Resolved]
